FAERS Safety Report 24723217 (Version 1)
Quarter: 2024Q4

REPORT INFORMATION
  Report Type: Spontaneous
  Country: FR (occurrence: FR)
  Receive Date: 20241211
  Receipt Date: 20241211
  Transmission Date: 20250115
  Serious: Yes (Other)
  Sender: NOVARTIS
  Company Number: None

PATIENT
  Age: 67 Year
  Sex: Male
  Weight: 89 kg

DRUGS (9)
  1. LUTATHERA [Suspect]
     Active Substance: LUTETIUM OXODOTREOTIDE LU-177
     Indication: Meningioma
     Dosage: 7371 MBQ (STRENGTH: 370 MBQ/ML)
     Route: 042
     Dates: start: 20230608, end: 20230608
  2. LUTATHERA [Suspect]
     Active Substance: LUTETIUM OXODOTREOTIDE LU-177
     Dosage: 3600 MBQ
     Route: 042
     Dates: start: 20230803, end: 20230803
  3. LUTATHERA [Suspect]
     Active Substance: LUTETIUM OXODOTREOTIDE LU-177
     Dosage: 7201 MBQ
     Route: 042
     Dates: start: 20230925, end: 20230925
  4. LUTATHERA [Suspect]
     Active Substance: LUTETIUM OXODOTREOTIDE LU-177
     Dosage: 7400 MBQ
     Route: 042
     Dates: start: 20231123, end: 20231123
  5. ONDANSETRON [Concomitant]
     Active Substance: ONDANSETRON
     Indication: Prophylaxis of nausea and vomiting
     Dosage: 8 MG ,1 CP AVANT LA CURE DE LUTATHERA (FILM ORODISPERSIBLE)
     Route: 048
     Dates: start: 20230608, end: 20230608
  6. ONDANSETRON [Concomitant]
     Active Substance: ONDANSETRON
     Dosage: 8 MG, 1 CP AVANT LA CURE DE LUTATHERA
     Route: 048
     Dates: start: 20230803, end: 20230803
  7. ONDANSETRON [Concomitant]
     Active Substance: ONDANSETRON
     Dosage: 8 MG (1 CP AVANT LA CURE DE LUTATHERA)
     Route: 048
     Dates: start: 20230925, end: 20230925
  8. ONDANSETRON [Concomitant]
     Active Substance: ONDANSETRON
     Dosage: 8 MG, 1 CP AVANT LA CURE DE LUTATHERA
     Route: 048
     Dates: start: 20231123, end: 20231123
  9. KEPPRA [Concomitant]
     Active Substance: LEVETIRACETAM
     Indication: Partial seizures
     Dosage: 500 MG, Q12H (COMPRIME PELLICULE)
     Route: 048

REACTIONS (3)
  - Lymphopenia [Recovering/Resolving]
  - Thrombocytopenia [Recovering/Resolving]
  - Condition aggravated [Recovering/Resolving]

NARRATIVE: CASE EVENT DATE: 20230622
